FAERS Safety Report 21976184 (Version 2)
Quarter: 2023Q1

REPORT INFORMATION
  Report Type: Spontaneous
  Country: FR (occurrence: None)
  Receive Date: 20230210
  Receipt Date: 20230228
  Transmission Date: 20230417
  Serious: Yes (Death, Hospitalization)
  Sender: FDA-Public Use
  Company Number: FR-Orion Corporation ORION PHARMA-TREX2023-0038

PATIENT
  Age: 85 Year
  Sex: Female
  Weight: 64 kg

DRUGS (3)
  1. METHOTREXATE SODIUM [Suspect]
     Active Substance: METHOTREXATE SODIUM
     Indication: Product used for unknown indication
     Dosage: STRENGTH: 10 MG
     Route: 048
  2. METHOTREXATE SODIUM [Suspect]
     Active Substance: METHOTREXATE SODIUM
     Dosage: STRENGTH: 10 MG
     Route: 048
     Dates: end: 20230104
  3. FOLIC ACID [Concomitant]
     Active Substance: FOLIC ACID
     Route: 065

REACTIONS (8)
  - Accidental overdose [Fatal]
  - Inappropriate schedule of product administration [Fatal]
  - Drug level increased [Fatal]
  - Renal failure [Fatal]
  - Rash maculo-papular [Unknown]
  - Stomatitis [Unknown]
  - Leukopenia [Unknown]
  - Vulvar erosion [Unknown]
